FAERS Safety Report 13652562 (Version 1)
Quarter: 2017Q2

REPORT INFORMATION
  Report Type: Spontaneous
  Country: US (occurrence: US)
  Receive Date: 20170614
  Receipt Date: 20170614
  Transmission Date: 20170830
  Serious: No
  Sender: FDA-Public Use
  Company Number: US-ROCHE-1368453

PATIENT
  Sex: Male

DRUGS (1)
  1. XELODA [Suspect]
     Active Substance: CAPECITABINE
     Indication: PRODUCT USED FOR UNKNOWN INDICATION
     Dosage: 14 DAYS ON, 7 DAYS OFF, 500MG TABLET
     Route: 048
     Dates: start: 20140218

REACTIONS (3)
  - Diarrhoea [Unknown]
  - Rash [Recovered/Resolved]
  - Paraesthesia [Unknown]
